FAERS Safety Report 6310101-9 (Version None)
Quarter: 2009Q3

REPORT INFORMATION
  Report Type: 
  Country: None (occurrence: None)
  Receive Date: 20090811
  Receipt Date: 20090728
  Transmission Date: 20100115
  Serious: Yes (Death)
  Sender: FDA-Public Use
  Company Number: KV200801639

PATIENT
  Age: 61 Year
  Sex: Male
  Weight: 68 kg

DRUGS (5)
  1. MORPHINE SULFATE [Suspect]
     Indication: CANCER PAIN
     Dosage: 60 MG, BID, ORAL
     Route: 048
     Dates: start: 20070101, end: 20080813
  2. MORPHINE [Concomitant]
  3. MORPHINE [Concomitant]
  4. FLEXERIL /00428402/ (CYCLOBENZAPRINE HYDROCHLORIDE) [Concomitant]
  5. REGLAN /00041901/ (METOCLOPRAMIDE) [Concomitant]

REACTIONS (5)
  - DYSPHAGIA [None]
  - GENERAL PHYSICAL HEALTH DETERIORATION [None]
  - LUNG NEOPLASM MALIGNANT [None]
  - MALIGNANT NEOPLASM PROGRESSION [None]
  - PRODUCT QUALITY ISSUE [None]
